FAERS Safety Report 9395646 (Version 1)
Quarter: 2013Q3

REPORT INFORMATION
  Report Type: Spontaneous
  Country: FR (occurrence: FR)
  Receive Date: 20130711
  Receipt Date: 20130711
  Transmission Date: 20140515
  Serious: Yes (Hospitalization)
  Sender: FDA-Public Use
  Company Number: FR-TEVA-417261ISR

PATIENT
  Age: 89 Year
  Sex: Female

DRUGS (8)
  1. METHOTREXATE TEVA [Suspect]
     Indication: LYMPHOMA
     Dosage: 1000 MG/M2 DAILY;
     Route: 042
     Dates: start: 20130128, end: 20130321
  2. RITUXIMAB [Concomitant]
     Indication: LYMPHOMA
     Dates: start: 20130128
  3. RITUXIMAB [Concomitant]
     Dates: start: 20130128
  4. RITUXIMAB [Concomitant]
     Dates: start: 20130128
  5. RITUXIMAB [Concomitant]
     Dates: start: 20130128
  6. CYCLOPHOSPHAMIDE [Concomitant]
     Indication: LYMPHOMA
     Dates: start: 20130128
  7. VINCRISTINE [Concomitant]
     Indication: LYMPHOMA
     Dates: start: 20130128
  8. PREDNISONE [Concomitant]
     Indication: LYMPHOMA
     Dates: start: 20130128

REACTIONS (3)
  - Confusional state [Recovered/Resolved]
  - Aphasia [Recovered/Resolved]
  - Dysarthria [Recovered/Resolved]
